FAERS Safety Report 6250209-X (Version None)
Quarter: 2009Q2

REPORT INFORMATION
  Report Type: 
  Country: None (occurrence: None)
  Receive Date: 20090629
  Receipt Date: 20080527
  Transmission Date: 20091009
  Serious: No
  Sender: FDA-Public Use
  Company Number: US-BAUSCH-2008BL002339

PATIENT
  Sex: Male

DRUGS (1)
  1. OFLOXACIN OPHTHALMIC SOLUTION 0.3% [Suspect]
     Route: 001
     Dates: start: 20080523, end: 20080525

REACTIONS (2)
  - EAR PAIN [None]
  - WRONG DRUG ADMINISTERED [None]
